FAERS Safety Report 19798771 (Version 3)
Quarter: 2021Q4

REPORT INFORMATION
  Report Type: Report from Study
  Country: CO (occurrence: CO)
  Receive Date: 20210907
  Receipt Date: 20211129
  Transmission Date: 20220303
  Serious: Yes (Life-Threatening, Other)
  Sender: FDA-Public Use
  Company Number: CO-002147023-PHHY2018CO020524

PATIENT

DRUGS (10)
  1. RUXOLITINIB [Suspect]
     Active Substance: RUXOLITINIB
     Indication: Myelofibrosis
     Dosage: 60 MG, BID
     Route: 048
  2. RUXOLITINIB [Suspect]
     Active Substance: RUXOLITINIB
     Dosage: 40 MG, QD
     Route: 048
     Dates: start: 20180509
  3. RUXOLITINIB [Suspect]
     Active Substance: RUXOLITINIB
     Dosage: 20 MG, BID
     Route: 048
  4. RUXOLITINIB [Suspect]
     Active Substance: RUXOLITINIB
     Dosage: 20 MG, Q8H (EVERY 8 HOURS)
     Route: 048
  5. RUXOLITINIB [Suspect]
     Active Substance: RUXOLITINIB
     Dosage: 20 MG, TID
     Route: 048
  6. RUXOLITINIB [Suspect]
     Active Substance: RUXOLITINIB
     Dosage: 60 MG, QD
     Route: 048
  7. RUXOLITINIB [Suspect]
     Active Substance: RUXOLITINIB
     Dosage: 40 MG, QD (60 TABLETS OF 20 MG)
     Route: 048
     Dates: start: 20210826
  8. RUXOLITINIB [Suspect]
     Active Substance: RUXOLITINIB
     Dosage: UNK, QD
     Route: 048
  9. HYDROXYUREA [Concomitant]
     Active Substance: HYDROXYUREA
     Indication: Myelofibrosis
     Dosage: 1 DF, BID
     Route: 065
  10. HYDROXYUREA [Concomitant]
     Active Substance: HYDROXYUREA
     Dosage: 500 MG, BID (EVERY 12 HOURS)
     Route: 048

REACTIONS (32)
  - Depressed mood [Unknown]
  - Abdominal pain upper [Unknown]
  - Tendon pain [Unknown]
  - Platelet count decreased [Unknown]
  - Abdominal pain [Unknown]
  - Mobility decreased [Unknown]
  - General physical health deterioration [Unknown]
  - Diarrhoea [Unknown]
  - Dizziness [Unknown]
  - Fatigue [Unknown]
  - Fall [Unknown]
  - Hypoaesthesia [Unknown]
  - Headache [Unknown]
  - Haematoma [Unknown]
  - Back pain [Unknown]
  - Arthralgia [Unknown]
  - Decreased appetite [Unknown]
  - Nausea [Unknown]
  - Pain in extremity [Unknown]
  - Pain [Unknown]
  - Feeling hot [Unknown]
  - Inappropriate schedule of product administration [Unknown]
  - Product dose omission issue [Unknown]
  - Incorrect dose administered [Unknown]
  - Platelet count increased [Unknown]
  - Fear [Unknown]
  - Illness [Unknown]
  - Pharyngitis [Unknown]
  - Malaise [Unknown]
  - Urinary tract infection [Unknown]
  - Vomiting [Unknown]
  - Product delivery mechanism issue [Unknown]

NARRATIVE: CASE EVENT DATE: 20180509
